FAERS Safety Report 9655832 (Version 2)
Quarter: 2014Q1

REPORT INFORMATION
  Report Type: Spontaneous
  Country: US (occurrence: US)
  Receive Date: 20131030
  Receipt Date: 20140130
  Transmission Date: 20141002
  Serious: Yes (Other)
  Sender: FDA-Public Use
  Company Number: US-JNJFOC-20131012961

PATIENT
  Sex: Female

DRUGS (3)
  1. ZYRTEC ALLERGY TABLETS [Suspect]
     Indication: SINUSITIS
     Route: 065
  2. ZYRTEC ALLERGY TABLETS [Suspect]
     Indication: MULTIPLE ALLERGIES
     Route: 065
  3. HIGH BLOOD PRESSURE PILL, NOS [Concomitant]
     Indication: PRODUCT USED FOR UNKNOWN INDICATION
     Route: 065

REACTIONS (4)
  - Sinusitis [Not Recovered/Not Resolved]
  - Inappropriate schedule of drug administration [Unknown]
  - Incorrect dose administered [Unknown]
  - Drug ineffective [Unknown]
